FAERS Safety Report 8214037-8 (Version None)
Quarter: 2012Q1

REPORT INFORMATION
  Report Type: 
  Country: None (occurrence: None)
  Receive Date: 20120314
  Receipt Date: 20120314
  Transmission Date: 20120608
  Serious: Yes (Death)
  Sender: FDA-Public Use
  Company Number: None

PATIENT
  Age: 85 Year
  Sex: Male

DRUGS (10)
  1. TIOTROPIUM [Concomitant]
  2. DIAZEPAM [Concomitant]
  3. ALBUTEROL [Concomitant]
  4. REVLIMID [Suspect]
     Indication: MULTIPLE MYELOMA
     Dosage: REVLIMID 10 MG DAILY X21D/28D ORALLY
     Route: 048
     Dates: start: 20080201, end: 20120201
  5. FLUTICASONE PROPIONATE/SALMETEROL [Concomitant]
  6. MORPHINE [Concomitant]
  7. FAMOTIDINE [Concomitant]
  8. PHENYTOIN [Concomitant]
  9. LORAZEPAM [Concomitant]
  10. PHENOBARBITAL TAB [Concomitant]

REACTIONS (2)
  - FALL [None]
  - FEMUR FRACTURE [None]
